FAERS Safety Report 20308608 (Version 2)
Quarter: 2022Q1

REPORT INFORMATION
  Report Type: Other
  Country: AR (occurrence: AR)
  Receive Date: 20220107
  Receipt Date: 20220307
  Transmission Date: 20220424
  Serious: Yes (Hospitalization, Other)
  Sender: FDA-Public Use
  Company Number: AR-002147023-NVSC2019AR027966

PATIENT
  Age: 10 Year
  Sex: Female

DRUGS (3)
  1. XOLAIR [Suspect]
     Active Substance: OMALIZUMAB
     Indication: Asthma
     Dosage: 600 MG, QMO (4 DOSAGE FORM)?MOST RECENT DOSE WAS RECEIVED ON 01/SEP/2020.
     Route: 058
     Dates: start: 20170801
  2. FLUTICASONE [Concomitant]
     Active Substance: FLUTICASONE
     Indication: Product used for unknown indication
     Dosage: 250 MG, Q12H
     Route: 065
  3. MONTELUKAST [Concomitant]
     Active Substance: MONTELUKAST SODIUM
     Indication: Product used for unknown indication
     Dosage: UNK
     Route: 065

REACTIONS (10)
  - Asthma [Unknown]
  - Bronchial obstruction [Unknown]
  - Pneumonia [Unknown]
  - Respiratory disorder [Unknown]
  - Asthmatic crisis [Recovering/Resolving]
  - Dyspnoea [Unknown]
  - Nasopharyngitis [Unknown]
  - Malaise [Unknown]
  - Cough [Unknown]
  - Product supply issue [Unknown]

NARRATIVE: CASE EVENT DATE: 20191028
